FAERS Safety Report 6998957-8 (Version None)
Quarter: 2010Q3

REPORT INFORMATION
  Report Type: 
  Country: None (occurrence: None)
  Receive Date: 20100920
  Receipt Date: 20100226
  Transmission Date: 20110219
  Serious: No
  Sender: FDA-Public Use
  Company Number: US-ASTRAZENECA-2010SE08684

PATIENT
  Age: 62 Year
  Sex: Male
  Weight: 63.5 kg

DRUGS (9)
  1. SEROQUEL [Suspect]
     Indication: DEPRESSED MOOD
     Route: 048
     Dates: start: 19950101
  2. SEROQUEL [Suspect]
     Route: 048
     Dates: start: 20100101
  3. SEROQUEL [Suspect]
     Route: 048
     Dates: start: 20100101
  4. KLONOPIN [Concomitant]
  5. DARVOCET [Concomitant]
  6. LIPITOR [Concomitant]
  7. XANAX [Concomitant]
  8. FLEXERIL [Concomitant]
  9. AMBIEN CR [Concomitant]

REACTIONS (7)
  - AGITATION [None]
  - ANAEMIA [None]
  - HYPERCHOLESTEROLAEMIA [None]
  - HYPERGLYCAEMIA [None]
  - INSOMNIA [None]
  - MYALGIA [None]
  - POLYNEUROPATHY [None]
